FAERS Safety Report 9657357 (Version 2)
Quarter: 2013Q4

REPORT INFORMATION
  Report Type: Report from Study
  Country: NL (occurrence: NL)
  Receive Date: 20131030
  Receipt Date: 20131204
  Transmission Date: 20140711
  Serious: Yes (Hospitalization)
  Sender: FDA-Public Use
  Company Number: NL-GLAXOSMITHKLINE-B0936440A

PATIENT
  Age: 63 Year
  Sex: Male

DRUGS (4)
  1. PAZOPANIB [Suspect]
     Indication: RENAL CELL CARCINOMA
     Dosage: 800MG PER DAY
     Route: 048
     Dates: start: 20121105, end: 20131003
  2. EVEROLIMUS [Suspect]
     Indication: RENAL CELL CARCINOMA
     Dosage: 10MG PER DAY
     Route: 048
     Dates: start: 20131006
  3. OXYCONTIN [Concomitant]
     Dosage: 60MG PER DAY
     Dates: start: 20131016
  4. OXYNORM [Concomitant]
     Dosage: 5MG PER DAY
     Dates: start: 20131016

REACTIONS (1)
  - Disease progression [Not Recovered/Not Resolved]
